FAERS Safety Report 24653168 (Version 1)
Quarter: 2024Q4

REPORT INFORMATION
  Report Type: Spontaneous
  Country: US (occurrence: US)
  Receive Date: 20241122
  Receipt Date: 20241122
  Transmission Date: 20250115
  Serious: No
  Sender: PFIZER
  Company Number: US-PFIZER INC-PV202400150157

PATIENT
  Age: 66 Year
  Sex: Female

DRUGS (1)
  1. NURTEC ODT [Suspect]
     Active Substance: RIMEGEPANT SULFATE
     Indication: Migraine
     Dosage: 1 DF (PLACE 1 TABLET ON THE TONGUE AND ALLOW TO DISSOLVE EVERY 2 DAYS)
     Route: 048

REACTIONS (1)
  - Migraine [Unknown]
